FAERS Safety Report 7615766-7 (Version None)
Quarter: 2011Q3

REPORT INFORMATION
  Report Type: 
  Country: None (occurrence: None)
  Receive Date: 20110711
  Receipt Date: 20110627
  Transmission Date: 20111222
  Serious: Yes (Other)
  Sender: FDA-Public Use
  Company Number: 1000021935

PATIENT
  Age: 28 Year
  Sex: Female
  Weight: 71 kg

DRUGS (9)
  1. SERTRALINE HYDROCHLORIDE [Concomitant]
  2. QVAR (BECLOMETASONE DIPROPIONATE) (BECLOMETASONE DIPROPIONATE) [Concomitant]
  3. CITALOPRAM HYDROBROMIDE [Suspect]
     Dosage: ORAL
     Route: 048
     Dates: start: 20110511
  4. HYDROMOL EMOLLIENT (LIGHT LIQUID PARAFFIN, ISOPROPYL MYRISTATE) (LIGHT [Concomitant]
  5. FLUOXETINE [Concomitant]
  6. CETIRIZINE(CETIRIZINE) (CETIRIZINE) [Concomitant]
  7. DOSULEPIN (DOSULEPIN) (DOSULEPIN) [Concomitant]
  8. MOMETASONE (MOMETASONE) (MOMETASONE) [Concomitant]
  9. SALBUTAMOL (SALBUTAMOL) (SALBUTAMOL) [Concomitant]

REACTIONS (2)
  - YAWNING [None]
  - CONTUSION [None]
